FAERS Safety Report 6397780-5 (Version None)
Quarter: 2009Q4

REPORT INFORMATION
  Report Type: 
  Country: None (occurrence: None)
  Receive Date: 20091012
  Receipt Date: 20091005
  Transmission Date: 20100525
  Serious: Yes (Other)
  Sender: FDA-Public Use
  Company Number: US-KINGPHARMUSA00001-K200901227

PATIENT
  Sex: Female

DRUGS (2)
  1. AVINZA [Suspect]
     Dosage: 30 MG, UNK
  2. ATIVAN [Suspect]
     Indication: DRUG WITHDRAWAL MAINTENANCE THERAPY
     Dosage: 1 MG, UNK

REACTIONS (7)
  - ANXIETY [None]
  - DYSTONIA [None]
  - HEART RATE INCREASED [None]
  - HYPERMETABOLISM [None]
  - MUSCLE SPASMS [None]
  - PARTIAL SEIZURES [None]
  - WITHDRAWAL SYNDROME [None]
